FAERS Safety Report 9456678 (Version 1)
Quarter: 2013Q3

REPORT INFORMATION
  Report Type: Spontaneous
  Country: US (occurrence: US)
  Receive Date: 20130813
  Receipt Date: 20130813
  Transmission Date: 20140515
  Serious: Yes (Other)
  Sender: FDA-Public Use
  Company Number: US-FRI-1000047728

PATIENT
  Age: 88 Year
  Sex: Female

DRUGS (3)
  1. TUDORZA PRESSAIR [Suspect]
     Dosage: 800 MCG
     Route: 055
     Dates: start: 2013, end: 2013
  2. TUDORZA PRESSAIR [Suspect]
     Dosage: 400 MCG
     Route: 055
     Dates: start: 2013
  3. VITAMINS NOS [Concomitant]

REACTIONS (4)
  - Vaginal haemorrhage [Not Recovered/Not Resolved]
  - Vaginal odour [Not Recovered/Not Resolved]
  - Rash [Not Recovered/Not Resolved]
  - Urine flow decreased [Recovering/Resolving]
